FAERS Safety Report 8330225-4 (Version None)
Quarter: 2012Q2

REPORT INFORMATION
  Report Type: 
  Country: None (occurrence: None)
  Receive Date: 20120502
  Receipt Date: 20120419
  Transmission Date: 20120825
  Serious: Yes (Hospitalization)
  Sender: FDA-Public Use
  Company Number: NL-CELGENEUS-114-21880-12030310

PATIENT
  Sex: Female

DRUGS (6)
  1. REVLIMID [Suspect]
     Route: 048
     Dates: start: 20120404
  2. REVLIMID [Suspect]
     Dosage: 5 MILLIGRAM
     Route: 048
     Dates: start: 20120227
  3. SYMBICORT [Concomitant]
     Route: 055
  4. ALLOPURINOL [Concomitant]
     Dosage: 300 MILLIGRAM
     Route: 065
  5. ONDANSETRON [Concomitant]
     Dosage: 16 MILLIGRAM
     Route: 065
  6. OMEPRAZOLE [Concomitant]
     Dosage: 40 MILLIGRAM
     Route: 065

REACTIONS (1)
  - HYPERCALCAEMIA [None]
